FAERS Safety Report 6524494-0 (Version None)
Quarter: 2010Q1

REPORT INFORMATION
  Report Type: 
  Country: None (occurrence: None)
  Receive Date: 20100104
  Receipt Date: 20091202
  Transmission Date: 20100710
  Serious: No
  Sender: FDA-Public Use
  Company Number: US-BAYER-200917418BCC

PATIENT
  Age: 7 Month
  Sex: Female

DRUGS (1)
  1. DESONATE [Suspect]
     Indication: ECZEMA
     Route: 061

REACTIONS (1)
  - ECZEMA [None]
